FAERS Safety Report 20072789 (Version 1)
Quarter: 2021Q4

REPORT INFORMATION
  Report Type: Report from Study
  Country: US (occurrence: None)
  Receive Date: 20211116
  Receipt Date: 20211116
  Transmission Date: 20220303
  Serious: Yes (Hospitalization)
  Sender: FDA-Public Use
  Company Number: US-ROCHE-2954690

PATIENT
  Age: 64 Year
  Sex: Male
  Weight: 121.2 kg

DRUGS (2)
  1. OBINUTUZUMAB [Suspect]
     Active Substance: OBINUTUZUMAB
     Indication: Mantle cell lymphoma
     Dosage: CYCLE 1 WEEKLY AND CYCLE 2 MONTHLY
     Route: 042
  2. BENDAMUSTINE [Suspect]
     Active Substance: BENDAMUSTINE
     Indication: Mantle cell lymphoma
     Dosage: DAY 1 AND 2 MONTHLY
     Route: 042
     Dates: start: 20211102, end: 20211103

REACTIONS (2)
  - Fatigue [Unknown]
  - Sinus bradycardia [Unknown]

NARRATIVE: CASE EVENT DATE: 20211104
